FAERS Safety Report 23124107 (Version 1)
Quarter: 2023Q4

REPORT INFORMATION
  Report Type: Spontaneous
  Country: US (occurrence: US)
  Receive Date: 20231030
  Receipt Date: 20231030
  Transmission Date: 20240109
  Serious: No
  Sender: FDA-Public Use
  Company Number: US-BEH-2023164684

PATIENT
  Sex: Female

DRUGS (4)
  1. PRIVIGEN [Suspect]
     Active Substance: HUMAN IMMUNOGLOBULIN G
     Indication: Myasthenia gravis
     Dosage: 30 GRAM, QMT
     Route: 042
     Dates: start: 202012
  2. ONDANSETRON HYDROCHLORIDE [Concomitant]
     Active Substance: ONDANSETRON HYDROCHLORIDE
  3. SOLU-MEDROL [Concomitant]
     Active Substance: METHYLPREDNISOLONE SODIUM SUCCINATE
  4. HEPARIN [Concomitant]
     Active Substance: HEPARIN SODIUM

REACTIONS (5)
  - Nausea [Unknown]
  - Vomiting [Unknown]
  - Migraine with aura [Unknown]
  - No adverse event [Unknown]
  - Off label use [Unknown]
